FAERS Safety Report 8252834-3 (Version None)
Quarter: 2012Q2

REPORT INFORMATION
  Report Type: 
  Country: None (occurrence: None)
  Receive Date: 20120402
  Receipt Date: 20110217
  Transmission Date: 20120825
  Serious: No
  Sender: FDA-Public Use
  Company Number: US-ABBOTT-11P-163-0851113-00

PATIENT
  Sex: Male

DRUGS (2)
  1. ANDROGEL [Suspect]
     Indication: PRODUCT USED FOR UNKNOWN INDICATION
     Dosage: 5 GRAMS DAILY. PUMP
  2. ANDROGEL [Suspect]
     Dosage: 10 GRAMS DAILY. PUMP

REACTIONS (3)
  - BLOOD TESTOSTERONE DECREASED [None]
  - INAPPROPRIATE SCHEDULE OF DRUG ADMINISTRATION [None]
  - PRODUCT PACKAGING QUANTITY ISSUE [None]
